FAERS Safety Report 14785693 (Version 2)
Quarter: 2018Q2

REPORT INFORMATION
  Report Type: Spontaneous
  Country: US (occurrence: US)
  Receive Date: 20180420
  Receipt Date: 20180516
  Transmission Date: 20180711
  Serious: Yes (Hospitalization)
  Sender: FDA-Public Use
  Company Number: US-ENDO PHARMACEUTICALS INC-2018-034556

PATIENT
  Age: 63 Year
  Sex: Male

DRUGS (3)
  1. FUROSEMIDE TABLETS [Suspect]
     Active Substance: FUROSEMIDE
     Indication: OEDEMA PERIPHERAL
     Dosage: 20 MG, UNKNOWN
  2. LOSARTAN POTASSIUM / HYDROCHLOROTHIAZIDE 100MG/25MG [Concomitant]
     Active Substance: HYDROCHLOROTHIAZIDE\LOSARTAN POTASSIUM
     Indication: HYPERTENSION
  3. OXYCODONE [Concomitant]
     Active Substance: OXYCODONE
     Indication: BACK PAIN

REACTIONS (1)
  - Drug reaction with eosinophilia and systemic symptoms [Recovered/Resolved]
